FAERS Safety Report 24532115 (Version 1)
Quarter: 2024Q4

REPORT INFORMATION
  Report Type: Spontaneous
  Country: JP (occurrence: JP)
  Receive Date: 20241022
  Receipt Date: 20241022
  Transmission Date: 20250115
  Serious: Yes (Other)
  Sender: ROCHE
  Company Number: JP-CHUGAI-2024036362

PATIENT
  Age: 57 Year
  Sex: Female

DRUGS (2)
  1. PHESGO [Suspect]
     Active Substance: HYALURONIDASE-ZZXF\PERTUZUMAB\TRASTUZUMAB
     Indication: Breast cancer
     Dosage: UNK
     Route: 050
  2. IVERMECTIN [Suspect]
     Active Substance: IVERMECTIN
     Indication: Breast cancer
     Dosage: UNK
     Route: 050

REACTIONS (1)
  - Loss of consciousness [Recovered/Resolved]
